FAERS Safety Report 6976170-8 (Version None)
Quarter: 2010Q3

REPORT INFORMATION
  Report Type: 
  Country: None (occurrence: None)
  Receive Date: 20100910
  Receipt Date: 20090423
  Transmission Date: 20110219
  Serious: No
  Sender: FDA-Public Use
  Company Number: US-WYE-H09113909

PATIENT
  Sex: Female

DRUGS (7)
  1. PRISTIQ [Suspect]
     Indication: DEPRESSION
     Dosage: 50 MG EVERY 1 TOT
     Route: 048
     Dates: start: 20090415, end: 20090415
  2. GABAPENTIN [Concomitant]
  3. MEDROXYPROGESTERONE [Concomitant]
  4. TRAMADOL HCL [Concomitant]
  5. ESTRADIOL [Concomitant]
  6. LEVOTHYROXINE SODIUM [Concomitant]
  7. ALPRAZOLAM [Concomitant]

REACTIONS (2)
  - HEADACHE [None]
  - NAUSEA [None]
